FAERS Safety Report 11371874 (Version 1)
Quarter: 2015Q3

REPORT INFORMATION
  Report Type: Spontaneous
  Country: FR (occurrence: FR)
  Receive Date: 20150812
  Receipt Date: 20150812
  Transmission Date: 20151125
  Serious: Yes (Life-Threatening, Other)
  Sender: FDA-Public Use
  Company Number: FR-GLAXOSMITHKLINE-FR2015GSK113079

PATIENT
  Age: 29 Year
  Sex: Female

DRUGS (5)
  1. ORACILLIN [Suspect]
     Active Substance: PENICILLIN V BENZATHINE
     Indication: SPLENECTOMY
     Dosage: 1 MILLION IU, BID
     Route: 048
     Dates: start: 201504
  2. CORTICOSTEROIDS NOS [Concomitant]
     Active Substance: UNSPECIFIED INGREDIENT
  3. REVOLADE [Suspect]
     Active Substance: ELTROMBOPAG
     Indication: IMMUNE THROMBOCYTOPENIC PURPURA
     Dosage: UNK
     Route: 048
     Dates: start: 201504, end: 20150721
  4. CERAZETTE [Suspect]
     Active Substance: DESOGESTREL
     Indication: CONTRACEPTION
     Dosage: UNK
     Route: 048
     Dates: end: 20150721
  5. IMMUNOGLOBULINS INTRAVENOUS [Concomitant]

REACTIONS (1)
  - Pulmonary embolism [Not Recovered/Not Resolved]

NARRATIVE: CASE EVENT DATE: 20150721
